FAERS Safety Report 4371754-8 (Version None)
Quarter: 2004Q2

REPORT INFORMATION
  Report Type: 
  Country: None (occurrence: None)
  Receive Date: 20040602
  Receipt Date: 20040526
  Transmission Date: 20050107
  Serious: Yes (Life-Threatening, Hospitalization)
  Sender: FDA-Public Use
  Company Number: 200417860BWH

PATIENT

DRUGS (1)
  1. TRASYLOL [Suspect]
     Indication: LIVER TRANSPLANT
     Dosage: INTRAVENOUS
     Route: 042
     Dates: start: 20040504

REACTIONS (4)
  - AORTIC VALVE DISEASE [None]
  - CARDIAC ARREST [None]
  - INTRACARDIAC THROMBUS [None]
  - PROCEDURAL COMPLICATION [None]
